FAERS Safety Report 15496927 (Version 2)
Quarter: 2018Q4

REPORT INFORMATION
  Report Type: Spontaneous
  Country: DE (occurrence: DE)
  Receive Date: 20181015
  Receipt Date: 20181128
  Transmission Date: 20190205
  Serious: Yes (Other)
  Sender: FDA-Public Use
  Company Number: DE-JNJFOC-20181007577

PATIENT
  Sex: Female

DRUGS (2)
  1. REGAINE WOMEN [Suspect]
     Active Substance: MINOXIDIL
     Indication: PRODUCT USED FOR UNKNOWN INDICATION
     Route: 065
  2. REGAINE WOMEN [Suspect]
     Active Substance: MINOXIDIL
     Route: 065

REACTIONS (1)
  - Arrhythmia [Unknown]
